FAERS Safety Report 10362922 (Version 1)
Quarter: 2014Q3

REPORT INFORMATION
  Report Type: Spontaneous
  Country: US (occurrence: US)
  Receive Date: 20140805
  Receipt Date: 20140805
  Transmission Date: 20150326
  Serious: Yes (Other)
  Sender: FDA-Public Use
  Company Number: US-PAR PHARMACEUTICAL, INC-2014SCPR009300

PATIENT

DRUGS (3)
  1. UNKNOWN DRUG [Suspect]
     Active Substance: UNSPECIFIED INGREDIENT
     Indication: SUBSTANCE USE
     Dosage: UNK, UNKNOWN
     Route: 042
  2. KETALAR [Suspect]
     Active Substance: KETAMINE HYDROCHLORIDE
     Indication: SUBSTANCE USE
     Dosage: UNK UNK, 3-5 TIMES DAILY
     Route: 065
  3. COCAINE [Suspect]
     Active Substance: COCAINE
     Indication: SUBSTANCE USE
     Dosage: UNK, UNKNOWN
     Route: 065

REACTIONS (8)
  - Cystitis [Unknown]
  - Hydroureter [Unknown]
  - Ataxia [Unknown]
  - Urinary incontinence [None]
  - Contracted bladder [Unknown]
  - Drug abuse [Unknown]
  - Hydronephrosis [Unknown]
  - Anxiety [None]
